FAERS Safety Report 9219429 (Version 1)
Quarter: 2013Q2

REPORT INFORMATION
  Report Type: Spontaneous
  Country: US (occurrence: None)
  Receive Date: 20130405
  Receipt Date: 20130405
  Transmission Date: 20140414
  Serious: Yes (Other)
  Sender: FDA-Public Use
  Company Number: ACO_35107_2013

PATIENT
  Sex: Female

DRUGS (17)
  1. AMPYRA [Suspect]
     Indication: PRODUCT USED FOR UNKNOWN INDICATION
  2. REBIF (INTERFERON BETA-1A) [Concomitant]
  3. SYNTHROID (LEVOTHYROXINE SODIUM) [Concomitant]
  4. FENOFIBRATE (FENOFIBRATE) [Concomitant]
  5. BACLOFEN (BACLOFEN) [Concomitant]
  6. FINASTERIDE (FINASTERIDE) [Concomitant]
  7. ASPIRIN (ACETYLSALICYLIC ACID) [Concomitant]
  8. SIMVASTATIN (SIMVASTATIN) [Concomitant]
  9. METFORMIN ER (METFORMIN HYDROCHLORIDE) [Concomitant]
  10. LOSARTAN (LOSARTAN POTASSIUM) [Concomitant]
  11. VITAMIN C [Concomitant]
  12. VOLTAREN (DICLOFENAC SODIUM) [Concomitant]
  13. FERREX (POLYSACCHARIDE-IRON COMPLEX) [Concomitant]
  14. AMBIEN (ZOLPIDEM TARTRATE) [Concomitant]
  15. CALCIUM (CALCIUM) [Concomitant]
  16. FISH OIL (FISH OIL) [Concomitant]
  17. MULTIVITAMIN (VITAMINS NOS) [Concomitant]

REACTIONS (5)
  - Convulsion [None]
  - Hip arthroplasty [None]
  - Injection site pain [None]
  - Injection site ulcer [None]
  - Multiple sclerosis relapse [None]
